FAERS Safety Report 12220593 (Version 1)
Quarter: 2016Q1

REPORT INFORMATION
  Report Type: Spontaneous
  Country: FR (occurrence: FR)
  Receive Date: 20160330
  Receipt Date: 20160330
  Transmission Date: 20160526
  Serious: Yes (Hospitalization)
  Sender: FDA-Public Use
  Company Number: FR-ASTRAZENECA-2016SE31874

PATIENT
  Age: 42 Year
  Sex: Female

DRUGS (4)
  1. URSOLVAN [Concomitant]
     Active Substance: URSODIOL
  2. XEROQUEL [Suspect]
     Active Substance: QUETIAPINE FUMARATE
     Indication: BIPOLAR DISORDER
     Dosage: 400 MG IN THE MORNING AND 300 MG IN THE EVENING
     Route: 048
     Dates: start: 2013
  3. LEVOTHYROX [Concomitant]
     Active Substance: LEVOTHYROXINE
  4. TERALITHE [Concomitant]
     Active Substance: LITHIUM CARBONATE

REACTIONS (2)
  - Type 2 diabetes mellitus [Not Recovered/Not Resolved]
  - Off label use [Not Recovered/Not Resolved]

NARRATIVE: CASE EVENT DATE: 2013
